FAERS Safety Report 10626922 (Version 2)
Quarter: 2015Q1

REPORT INFORMATION
  Report Type: Spontaneous
  Country: US (occurrence: US)
  Receive Date: 20141204
  Receipt Date: 20150116
  Transmission Date: 20150720
  Serious: No
  Sender: FDA-Public Use
  Company Number: US-PFIZER INC-2014328420

PATIENT
  Age: 81 Year
  Sex: Female
  Weight: 64 kg

DRUGS (1)
  1. ADVIL [Suspect]
     Active Substance: IBUPROFEN
     Indication: HERNIA PAIN
     Dosage: UNK

REACTIONS (8)
  - Stomatitis [Recovering/Resolving]
  - Glossitis [Unknown]
  - Oral pain [Recovering/Resolving]
  - Feeling abnormal [Recovering/Resolving]
  - Dysgeusia [Recovering/Resolving]
  - Swollen tongue [Recovering/Resolving]
  - Tongue discolouration [Recovering/Resolving]
  - Intentional product misuse [Unknown]

NARRATIVE: CASE EVENT DATE: 20141120
